FAERS Safety Report 4773141-7 (Version None)
Quarter: 2005Q3

REPORT INFORMATION
  Report Type: 
  Country: None (occurrence: None)
  Receive Date: 20050919
  Receipt Date: 20050907
  Transmission Date: 20060218
  Serious: Yes (Other)
  Sender: FDA-Public Use
  Company Number: 2005-US-00050

PATIENT
  Age: 53 Year
  Sex: Male

DRUGS (3)
  1. CYCLOSPORINE [Suspect]
     Indication: IMMUNOSUPPRESSION
  2. PREDNISOLONE [Suspect]
     Indication: IMMUNOSUPPRESSION
     Dosage: 0.1 MG/KG/DAY
  3. AZATHIOPRINE [Suspect]
     Indication: IMMUNOSUPPRESSION
     Dosage: 1 MG/KG/DAY

REACTIONS (10)
  - ABSCESS INTESTINAL [None]
  - C-REACTIVE PROTEIN INCREASED [None]
  - COLITIS ULCERATIVE [None]
  - CONDITION AGGRAVATED [None]
  - EPSTEIN-BARR VIRUS INFECTION [None]
  - FLATULENCE [None]
  - HAEMOGLOBIN DECREASED [None]
  - PYREXIA [None]
  - RED BLOOD CELL SEDIMENTATION RATE INCREASED [None]
  - THERAPY NON-RESPONDER [None]
